FAERS Safety Report 16819975 (Version 1)
Quarter: 2019Q3

REPORT INFORMATION
  Report Type: Spontaneous
  Country: US (occurrence: US)
  Receive Date: 20190918
  Receipt Date: 20190918
  Transmission Date: 20191005
  Serious: Yes (Other)
  Sender: FDA-Public Use
  Company Number: US-ABBVIE-19K-163-2926366-00

PATIENT
  Age: 28 Year
  Sex: Female

DRUGS (2)
  1. ORILISSA [Suspect]
     Active Substance: ELAGOLIX SODIUM
     Indication: ENDOMETRIOSIS
     Route: 048
     Dates: start: 20190606, end: 201906
  2. AYGESTIN [Concomitant]
     Active Substance: NORETHINDRONE ACETATE
     Indication: CONTRACEPTION
     Route: 065

REACTIONS (2)
  - Unevaluable event [Unknown]
  - Pulmonary embolism [Recovered/Resolved]

NARRATIVE: CASE EVENT DATE: 20190723
